FAERS Safety Report 6925167-2 (Version None)
Quarter: 2010Q3

REPORT INFORMATION
  Report Type: 
  Country: None (occurrence: None)
  Receive Date: 20100816
  Receipt Date: 20100727
  Transmission Date: 20110219
  Serious: Yes (Death, Other)
  Sender: FDA-Public Use
  Company Number: JP-SANOFI-AVENTIS-2010SA047910

PATIENT
  Age: 59 Year
  Sex: Male

DRUGS (11)
  1. FLUDARABINE PHOSPHATE [Suspect]
     Route: 048
  2. MELPHALAN [Suspect]
     Route: 065
  3. ETOPOSIDE [Suspect]
     Route: 065
  4. VINCRISTINE [Concomitant]
     Indication: BURKITT'S LYMPHOMA
  5. DOXORUBICIN HCL [Concomitant]
     Indication: BURKITT'S LYMPHOMA
  6. DEXAMETHASONE [Concomitant]
     Indication: BURKITT'S LYMPHOMA
  7. RITUXIMAB [Concomitant]
     Indication: BURKITT'S LYMPHOMA
  8. CYCLOPHOSPHAMIDE [Concomitant]
     Indication: BURKITT'S LYMPHOMA
  9. IFOSFAMIDE [Concomitant]
     Indication: BURKITT'S LYMPHOMA
  10. ETOPOSIDE [Concomitant]
     Indication: BURKITT'S LYMPHOMA
  11. CYTARABINE [Concomitant]
     Indication: BURKITT'S LYMPHOMA

REACTIONS (5)
  - ACUTE GRAFT VERSUS HOST DISEASE [None]
  - CHOLANGITIS ACUTE [None]
  - DISEASE PROGRESSION [None]
  - FUNGAL INFECTION [None]
  - SEPTIC SHOCK [None]
